FAERS Safety Report 21611578 (Version 3)
Quarter: 2022Q4

REPORT INFORMATION
  Report Type: Report from Study
  Country: US (occurrence: US)
  Receive Date: 20221117
  Receipt Date: 20221226
  Transmission Date: 20230112
  Serious: Yes (Hospitalization, Other)
  Sender: FDA-Public Use
  Company Number: US-ACADIA PHARMACEUTICALS INC.-ACA-2022-PIM-003684

PATIENT
  Age: 80 Year
  Sex: Male

DRUGS (4)
  1. NUPLAZID [Suspect]
     Active Substance: PIMAVANSERIN TARTRATE
     Indication: Parkinson^s disease psychosis
     Dosage: 34 MILLIGRAM, QD
     Route: 065
     Dates: start: 20220929, end: 202211
  2. DONEPEZIL [Concomitant]
     Active Substance: DONEPEZIL
  3. QUETIAPINE [Concomitant]
     Active Substance: QUETIAPINE
  4. MEMANTINE [Concomitant]
     Active Substance: MEMANTINE

REACTIONS (2)
  - Arrhythmia [Not Recovered/Not Resolved]
  - Dizziness [Recovered/Resolved]

NARRATIVE: CASE EVENT DATE: 20221021
